FAERS Safety Report 20039204 (Version 1)
Quarter: 2021Q4

REPORT INFORMATION
  Report Type: Other
  Country: GB (occurrence: GB)
  Receive Date: 20211105
  Receipt Date: 20211105
  Transmission Date: 20220303
  Serious: Yes (Hospitalization, Other)
  Sender: FDA-Public Use
  Company Number: GB-MYLANLABS-2021M1061523

PATIENT
  Sex: Female
  Weight: 73 kg

DRUGS (89)
  1. LANSOPRAZOLE [Suspect]
     Active Substance: LANSOPRAZOLE
     Indication: Gastrooesophageal reflux disease
     Dosage: 15 MILLIGRAM, QD
     Route: 048
  2. LANSOPRAZOLE [Suspect]
     Active Substance: LANSOPRAZOLE
     Indication: Prophylaxis
     Dosage: 15 MG, QD
     Route: 048
  3. LANSOPRAZOLE [Suspect]
     Active Substance: LANSOPRAZOLE
     Dosage: 15 MILLIGRAM, QD
     Route: 048
  4. LANSOPRAZOLE [Suspect]
     Active Substance: LANSOPRAZOLE
     Dosage: 15 MG, QD
     Route: 048
  5. LANSOPRAZOLE [Suspect]
     Active Substance: LANSOPRAZOLE
     Dosage: 15 MG, QD
     Route: 048
  6. LANSOPRAZOLE [Suspect]
     Active Substance: LANSOPRAZOLE
     Dosage: 15 MILLIGRAM, QD
     Route: 048
  7. BISOPROLOL [Suspect]
     Active Substance: BISOPROLOL
     Indication: Hypertension
     Dosage: 2.5 MILLIGRAM, QD
     Route: 048
  8. BISOPROLOL [Suspect]
     Active Substance: BISOPROLOL
     Dosage: 2.5 MG, QD
     Route: 048
  9. BISOPROLOL [Suspect]
     Active Substance: BISOPROLOL
     Dosage: 2.5 MILLIGRAM, QD
     Route: 048
  10. BISOPROLOL [Suspect]
     Active Substance: BISOPROLOL
     Dosage: 2.5 MG, QD
     Route: 048
  11. BISOPROLOL [Suspect]
     Active Substance: BISOPROLOL
     Dosage: 2.5 MG, QD
     Route: 048
  12. BISOPROLOL [Suspect]
     Active Substance: BISOPROLOL
     Dosage: 2.5 MILLIGRAM, QD
     Route: 048
  13. CHOLECALCIFEROL [Suspect]
     Active Substance: CHOLECALCIFEROL
     Indication: Vitamin D abnormal
     Dosage: 800U
     Route: 048
  14. CHOLECALCIFEROL [Suspect]
     Active Substance: CHOLECALCIFEROL
     Dosage: UNK UNK, QD 800U
     Route: 048
  15. CHOLECALCIFEROL [Suspect]
     Active Substance: CHOLECALCIFEROL
     Dosage: 800U
     Route: 048
  16. CHOLECALCIFEROL [Suspect]
     Active Substance: CHOLECALCIFEROL
     Dosage: UNK UNK, QD 800U
     Route: 048
  17. CHOLECALCIFEROL [Suspect]
     Active Substance: CHOLECALCIFEROL
     Dosage: UNK UNK, QD 800U
     Route: 048
  18. CHOLECALCIFEROL [Suspect]
     Active Substance: CHOLECALCIFEROL
     Dosage: UNK, QD (800U)
     Route: 048
  19. CLOZARIL [Suspect]
     Active Substance: CLOZAPINE
     Indication: Schizophrenia
     Dosage: 75 MILLIGRAM, BID
     Route: 048
     Dates: start: 20141128
  20. PARAFFIN\WAX, EMULSIFYING [Suspect]
     Active Substance: PARAFFIN\WAX, EMULSIFYING
     Indication: Eczema
     Dosage: UNK
     Route: 061
  21. PETROLATUM [Suspect]
     Active Substance: PETROLATUM
     Indication: Eczema
     Dosage: UNK
     Route: 061
  22. MINERAL OIL [Suspect]
     Active Substance: MINERAL OIL
     Indication: Eczema
     Dosage: UNK
     Route: 061
  23. MINERAL OIL [Suspect]
     Active Substance: MINERAL OIL
     Dosage: UNK
     Route: 061
  24. MINERAL OIL [Suspect]
     Active Substance: MINERAL OIL
     Dosage: UNK
     Route: 061
  25. MINERAL OIL [Suspect]
     Active Substance: MINERAL OIL
     Dosage: UNK
     Route: 061
  26. MINERAL OIL [Suspect]
     Active Substance: MINERAL OIL
     Dosage: UNK
     Route: 061
  27. MINERAL OIL [Suspect]
     Active Substance: MINERAL OIL
     Dosage: UNK
     Route: 061
  28. ISOSORBIDE MONONITRATE [Suspect]
     Active Substance: ISOSORBIDE MONONITRATE
     Indication: Diabetes mellitus
     Dosage: 50 MILLIGRAM, QD
     Route: 048
  29. ISOSORBIDE MONONITRATE [Suspect]
     Active Substance: ISOSORBIDE MONONITRATE
     Dosage: 50 MG, QD
     Route: 048
  30. ISOSORBIDE MONONITRATE [Suspect]
     Active Substance: ISOSORBIDE MONONITRATE
     Dosage: 50 MILLIGRAM, QD
     Route: 048
  31. ISOSORBIDE MONONITRATE [Suspect]
     Active Substance: ISOSORBIDE MONONITRATE
     Dosage: 50 MG, QD
     Route: 048
  32. ISOSORBIDE MONONITRATE [Suspect]
     Active Substance: ISOSORBIDE MONONITRATE
     Dosage: 50 MG, QD
     Route: 048
  33. ISOSORBIDE MONONITRATE [Suspect]
     Active Substance: ISOSORBIDE MONONITRATE
     Dosage: 50 MILLIGRAM, QD
     Route: 048
  34. ISOSORBIDE MONONITRATE [Suspect]
     Active Substance: ISOSORBIDE MONONITRATE
     Dosage: 50 MG, QD
     Route: 048
  35. ISOSORBIDE MONONITRATE [Suspect]
     Active Substance: ISOSORBIDE MONONITRATE
     Dosage: 50 MG, QD
     Route: 048
  36. LEVOTHYROXINE SODIUM [Suspect]
     Active Substance: LEVOTHYROXINE SODIUM
     Indication: Hypothyroidism
     Dosage: 25 MICROGRAM, QD
     Route: 048
  37. LEVOTHYROXINE SODIUM [Suspect]
     Active Substance: LEVOTHYROXINE SODIUM
     Dosage: 25 UG, QD
     Route: 048
  38. LEVOTHYROXINE SODIUM [Suspect]
     Active Substance: LEVOTHYROXINE SODIUM
     Dosage: 25 MICROGRAM, QD
     Route: 048
  39. LEVOTHYROXINE SODIUM [Suspect]
     Active Substance: LEVOTHYROXINE SODIUM
     Dosage: 25 UG, QD
     Route: 048
  40. LEVOTHYROXINE SODIUM [Suspect]
     Active Substance: LEVOTHYROXINE SODIUM
     Dosage: 25 UG, QD
     Route: 048
  41. LEVOTHYROXINE SODIUM [Suspect]
     Active Substance: LEVOTHYROXINE SODIUM
     Dosage: 25 MICROGRAM, QD
     Route: 048
  42. MEBEVERINE [Suspect]
     Active Substance: MEBEVERINE
     Indication: Prophylaxis
     Dosage: 135 MILLIGRAM, QD
     Route: 048
  43. MEBEVERINE [Suspect]
     Active Substance: MEBEVERINE
     Dosage: 135 MG, QD
     Route: 048
  44. MEBEVERINE [Suspect]
     Active Substance: MEBEVERINE
     Dosage: 135 MILLIGRAM, QD
     Route: 048
  45. MEBEVERINE [Suspect]
     Active Substance: MEBEVERINE
     Dosage: 135 MG, QD
     Route: 048
  46. MEBEVERINE [Suspect]
     Active Substance: MEBEVERINE
     Dosage: 135 MG, QD
     Route: 048
  47. MEBEVERINE [Suspect]
     Active Substance: MEBEVERINE
     Dosage: 135 MILLIGRAM, QD
     Route: 048
  48. MEMANTINE [Suspect]
     Active Substance: MEMANTINE
     Indication: Dementia Alzheimer^s type
     Dosage: 20 MG, QD
     Route: 048
     Dates: start: 202106
  49. MEMANTINE [Suspect]
     Active Substance: MEMANTINE
     Dosage: UNK
  50. MEMANTINE [Suspect]
     Active Substance: MEMANTINE
     Dosage: UNK
     Route: 065
  51. MIRABEGRON [Suspect]
     Active Substance: MIRABEGRON
     Indication: Hypertonic bladder
     Dosage: 50 MILLIGRAM, QD
     Route: 048
  52. MIRABEGRON [Suspect]
     Active Substance: MIRABEGRON
     Dosage: 50 MG, QD
     Route: 048
  53. MIRABEGRON [Suspect]
     Active Substance: MIRABEGRON
     Dosage: 50 MILLIGRAM, QD
     Route: 048
  54. MIRABEGRON [Suspect]
     Active Substance: MIRABEGRON
     Dosage: 50 MG, QD
     Route: 048
  55. MIRABEGRON [Suspect]
     Active Substance: MIRABEGRON
     Dosage: 50 MG, QD
     Route: 048
  56. MIRABEGRON [Suspect]
     Active Substance: MIRABEGRON
     Dosage: 50 MILLIGRAM, QD
     Route: 048
  57. MIRABEGRON [Suspect]
     Active Substance: MIRABEGRON
     Dosage: UNK
  58. MIRABEGRON [Suspect]
     Active Substance: MIRABEGRON
     Dosage: 50 MG, QD
     Route: 048
  59. PREGABALIN [Suspect]
     Active Substance: PREGABALIN
     Indication: Anxiety
     Dosage: 100 MILLIGRAM, BID
     Route: 048
  60. PREGABALIN [Suspect]
     Active Substance: PREGABALIN
     Dosage: 100 MG, BID
     Route: 048
  61. PREGABALIN [Suspect]
     Active Substance: PREGABALIN
     Dosage: 100 MILLIGRAM, BID
     Route: 048
  62. PREGABALIN [Suspect]
     Active Substance: PREGABALIN
     Dosage: 100 MG, BID
     Route: 048
  63. PREGABALIN [Suspect]
     Active Substance: PREGABALIN
     Dosage: 100 MG, BID
     Route: 048
  64. PREGABALIN [Suspect]
     Active Substance: PREGABALIN
     Dosage: 100 MILLIGRAM, BID
     Route: 048
  65. SENNA [Suspect]
     Active Substance: SENNA LEAF\SENNOSIDES\SENNOSIDES A AND B
     Indication: Constipation
     Dosage: 7.5 MILLIGRAM, QD
     Route: 048
  66. SENNA [Suspect]
     Active Substance: SENNA LEAF\SENNOSIDES\SENNOSIDES A AND B
     Dosage: 7.5 MILLIGRAM, QD
     Route: 048
  67. SENNA [Suspect]
     Active Substance: SENNA LEAF\SENNOSIDES\SENNOSIDES A AND B
     Dosage: 7.5 MILLIGRAM, QD
     Route: 048
  68. HYALURONATE SODIUM [Suspect]
     Active Substance: HYALURONATE SODIUM
     Indication: Dry eye
     Dosage: BOTH EYES, TID
     Route: 061
  69. TREHALOSE [Suspect]
     Active Substance: TREHALOSE
     Indication: Dry eye
     Dosage: BOTH EYES, TID
     Route: 061
  70. TREHALOSE [Suspect]
     Active Substance: TREHALOSE
     Dosage: UNK, TID (BOTH EYES)
     Route: 061
  71. VENTOLIN [Suspect]
     Active Substance: ALBUTEROL SULFATE
     Indication: Asthma
     Dosage: UNK, PRN
  72. VENTOLIN [Suspect]
     Active Substance: ALBUTEROL SULFATE
     Dosage: UNK, PRN
     Route: 065
  73. VENTOLIN [Suspect]
     Active Substance: ALBUTEROL SULFATE
     Dosage: UNK, PRN
  74. VENTOLIN [Suspect]
     Active Substance: ALBUTEROL SULFATE
     Dosage: UNK, PRN
     Route: 065
  75. VENTOLIN [Suspect]
     Active Substance: ALBUTEROL SULFATE
     Dosage: UNK, PRN
     Route: 065
  76. VENTOLIN [Suspect]
     Active Substance: ALBUTEROL SULFATE
     Dosage: UNK, PRN
     Route: 065
  77. VENTOLIN [Suspect]
     Active Substance: ALBUTEROL SULFATE
     Dosage: UNK, PRN
  78. SENNA LEAF [Suspect]
     Active Substance: SENNA LEAF
     Indication: Constipation
     Dosage: 7.5 MG, QD
     Route: 048
  79. SENNA LEAF [Suspect]
     Active Substance: SENNA LEAF
     Dosage: 7.5 MG, QD
     Route: 048
  80. SENNA LEAF [Suspect]
     Active Substance: SENNA LEAF
     Dosage: 7.5 MG, QD
     Route: 048
  81. MINERAL OIL\PETROLATUM\WAX, EMULSIFYING [Suspect]
     Active Substance: MINERAL OIL\PETROLATUM\WAX, EMULSIFYING
     Indication: Eczema
     Dosage: UNK
     Route: 061
  82. MINERAL OIL\PETROLATUM\WAX, EMULSIFYING [Suspect]
     Active Substance: MINERAL OIL\PETROLATUM\WAX, EMULSIFYING
     Dosage: UNK
     Route: 061
  83. MINERAL OIL\PETROLATUM\WAX, EMULSIFYING [Suspect]
     Active Substance: MINERAL OIL\PETROLATUM\WAX, EMULSIFYING
     Dosage: UNK
     Route: 061
  84. MINERAL OIL\PETROLATUM\WAX, EMULSIFYING [Suspect]
     Active Substance: MINERAL OIL\PETROLATUM\WAX, EMULSIFYING
     Dosage: UNK
     Route: 061
  85. UNSPECIFIED INGREDIENT [Suspect]
     Active Substance: UNSPECIFIED INGREDIENT
     Indication: Dry eye
     Dosage: BOTH EYES, TID
     Route: 061
  86. UNSPECIFIED INGREDIENT [Suspect]
     Active Substance: UNSPECIFIED INGREDIENT
     Dosage: UNK, TID (BOTH EYES)
     Route: 061
  87. UNSPECIFIED INGREDIENT [Suspect]
     Active Substance: UNSPECIFIED INGREDIENT
     Dosage: UNK, TID (BOTH EYES)
     Route: 061
  88. UNSPECIFIED INGREDIENT [Suspect]
     Active Substance: UNSPECIFIED INGREDIENT
     Dosage: BOTH EYES, TID
     Route: 061
  89. UNSPECIFIED INGREDIENT [Suspect]
     Active Substance: UNSPECIFIED INGREDIENT
     Dosage: UNK UNK, TID (BOTH EYES)
     Route: 061

REACTIONS (19)
  - Lung neoplasm malignant [Not Recovered/Not Resolved]
  - Chest pain [Unknown]
  - Pleural effusion [Not Recovered/Not Resolved]
  - Hypothyroidism [Unknown]
  - Schizophrenia [Unknown]
  - Cellulitis [Unknown]
  - Dementia Alzheimer^s type [Unknown]
  - Angina pectoris [Unknown]
  - Delirium [Unknown]
  - Iron deficiency anaemia [Unknown]
  - Vitamin D deficiency [Unknown]
  - Haemorrhoids [Unknown]
  - Dermatitis atopic [Unknown]
  - Anxiety disorder [Unknown]
  - Chronic obstructive pulmonary disease [Unknown]
  - Rash [Unknown]
  - Urinary tract infection [Unknown]
  - Dyspepsia [Unknown]
  - Metastatic neoplasm [Unknown]

NARRATIVE: CASE EVENT DATE: 20151125
